FAERS Safety Report 11436052 (Version 1)
Quarter: 2015Q3

REPORT INFORMATION
  Report Type: Spontaneous
  Country: US (occurrence: US)
  Receive Date: 20150821
  Receipt Date: 20150821
  Transmission Date: 20151125
  Serious: No
  Sender: FDA-Public Use
  Company Number: US-ELI_LILLY_AND_COMPANY-US201402007137

PATIENT
  Sex: Female

DRUGS (8)
  1. METOPROLOL [Concomitant]
     Active Substance: METOPROLOL
  2. DIGOXIN. [Concomitant]
     Active Substance: DIGOXIN
  3. SOTALOL. [Concomitant]
     Active Substance: SOTALOL
  4. PANTOPRAZOLE SODIUM. [Concomitant]
     Active Substance: PANTOPRAZOLE SODIUM
  5. SPIRONOLACTONE. [Concomitant]
     Active Substance: SPIRONOLACTONE
  6. ADCIRCA [Suspect]
     Active Substance: TADALAFIL
     Indication: PULMONARY HYPERTENSION
     Dosage: 20 MG, QD
     Dates: start: 20140214, end: 20140217
  7. AMLODIPINE [Concomitant]
     Active Substance: AMLODIPINE BESYLATE
  8. APIXABAN [Concomitant]
     Active Substance: APIXABAN

REACTIONS (9)
  - Fall [Unknown]
  - Urticaria [Recovering/Resolving]
  - Pruritus [Unknown]
  - Insomnia [Unknown]
  - Migraine [Unknown]
  - Abdominal discomfort [Unknown]
  - Myalgia [Recovering/Resolving]
  - Flushing [Not Recovered/Not Resolved]
  - Head injury [Unknown]
